FAERS Safety Report 20691855 (Version 1)
Quarter: 2022Q2

REPORT INFORMATION
  Report Type: Spontaneous
  Country: JP (occurrence: JP)
  Receive Date: 20220408
  Receipt Date: 20220408
  Transmission Date: 20220721
  Serious: Yes (Other)
  Sender: FDA-Public Use
  Company Number: JP-LUPIN PHARMACEUTICALS INC.-2022-05275

PATIENT
  Age: 86 Year
  Sex: Male

DRUGS (3)
  1. METHYLPREDNISOLONE [Suspect]
     Active Substance: METHYLPREDNISOLONE
     Indication: Toxic epidermal necrolysis
     Dosage: 1000 MG, DAILY, PULSE THERAPY; FOR 3 DAYS
     Route: 065
  2. PREDNISOLONE [Suspect]
     Active Substance: PREDNISOLONE
     Indication: Toxic epidermal necrolysis
     Dosage: 1 MILLIGRAM/KILOGRAM, QD
     Route: 048
  3. HUMAN IMMUNOGLOBULIN G [Suspect]
     Active Substance: HUMAN IMMUNOGLOBULIN G
     Indication: Toxic epidermal necrolysis
     Dosage: 400 MILLIGRAM/KILOGRAM, QD FOR 5 DAYS
     Route: 042

REACTIONS (2)
  - Drug ineffective for unapproved indication [Unknown]
  - Off label use [Unknown]
